FAERS Safety Report 8528827-5 (Version None)
Quarter: 2012Q3

REPORT INFORMATION
  Report Type: 
  Country: None (occurrence: None)
  Receive Date: 20120723
  Receipt Date: 20120718
  Transmission Date: 20120928
  Serious: No
  Sender: FDA-Public Use
  Company Number: US-PFIZER INC-2012174037

PATIENT
  Sex: Female
  Weight: 91 kg

DRUGS (9)
  1. SITAGLIPTIN AND METFORMIN HYDROCHLORIDE [Concomitant]
     Indication: DIABETES MELLITUS
     Dosage: [METFORMIN HYDROCHLORIDE 1000 MG/SITAGLIPTIN 50 MG], 2X/DAY
     Route: 048
  2. TRIAMTERENE AND HYDROCHLOROTHIAZIDE [Concomitant]
     Indication: FLUID RETENTION
     Dosage: [TRIAMTERENE37.5 MG/HYDROCHLOROTHIAZIDE 25 MG], DAILY
     Dates: start: 20090101
  3. WARFARIN [Concomitant]
     Indication: ATRIAL FIBRILLATION
     Dosage: 5 MG, DAILY AT NIGHT
     Dates: start: 20120601
  4. POTASSIUM CHLORIDE [Concomitant]
     Indication: BLOOD POTASSIUM DECREASED
     Dosage: TWO TABLETS OF 10 MG TWO TIMES IN A DAY
     Route: 048
     Dates: start: 20090101
  5. FLECTOR [Suspect]
     Indication: CONTUSION
     Dosage: UNK, DAILY
     Route: 062
     Dates: start: 20120714
  6. ZETIA [Concomitant]
     Indication: BLOOD CHOLESTEROL ABNORMAL
     Dosage: 10 MG, DAILY
     Route: 048
  7. LEVOTHYROXINE [Concomitant]
     Indication: HYPOTHYROIDISM
     Dosage: 50 UG, DAILY
     Route: 048
  8. METOPROLOL TARTRATE [Concomitant]
     Indication: ATRIAL FIBRILLATION
     Dosage: 25 MG, 2X/DAY
     Route: 048
  9. FLUTICASONE [Concomitant]
     Indication: SINUS DISORDER
     Dosage: 50 MG, UNK

REACTIONS (3)
  - DIZZINESS [None]
  - FATIGUE [None]
  - INSOMNIA [None]
